FAERS Safety Report 13782004 (Version 1)
Quarter: 2017Q3

REPORT INFORMATION
  Report Type: Spontaneous
  Country: US (occurrence: US)
  Receive Date: 20170724
  Receipt Date: 20170724
  Transmission Date: 20171127
  Serious: No
  Sender: FDA-Public Use
  Company Number: None

PATIENT

DRUGS (2)
  1. ESTRADIOL. [Suspect]
     Active Substance: ESTRADIOL
     Route: 061
  2. ESTRADIOL. [Suspect]
     Active Substance: ESTRADIOL
     Route: 061

REACTIONS (6)
  - Drug dispensing error [None]
  - Mood altered [None]
  - Haemorrhage [None]
  - Transcription medication error [None]
  - Unevaluable event [None]
  - Incorrect dose administered [None]
